FAERS Safety Report 16935167 (Version 2)
Quarter: 2019Q4

REPORT INFORMATION
  Report Type: Spontaneous
  Country: US (occurrence: US)
  Receive Date: 20191018
  Receipt Date: 20191023
  Transmission Date: 20200122
  Serious: No
  Sender: FDA-Public Use
  Company Number: US-PFIZER INC-2019294895

PATIENT
  Age: 9 Year
  Sex: Female

DRUGS (2)
  1. GENOTROPIN [Suspect]
     Active Substance: SOMATROPIN
     Dosage: 1 MG, UNK (AT BEDTIME 6 TIMES A WEEK)
     Route: 058
  2. GENOTROPIN [Suspect]
     Active Substance: SOMATROPIN
     Indication: HYPOPITUITARISM
     Dosage: 0.9 MG, DAILY (5MG CARTRIDGE, T 0.9MG DAILY)

REACTIONS (7)
  - Off label use [Unknown]
  - Injection site irritation [Unknown]
  - Injection site pain [Unknown]
  - Injection site mass [Unknown]
  - Product use in unapproved indication [Unknown]
  - Injection site vesicles [Unknown]
  - Injection site erythema [Unknown]
